FAERS Safety Report 8971279 (Version 1)
Quarter: 2012Q4

REPORT INFORMATION
  Report Type: 
  Country: US (occurrence: US)
  Receive Date: 20121217
  Receipt Date: 20121217
  Transmission Date: 20130627
  Serious: Yes (Other)
  Sender: FDA-Public Use
  Company Number: US-PFIZER INC-2012318490

PATIENT
  Age: 58 Year
  Sex: Female
  Weight: 86.17 kg

DRUGS (3)
  1. LYRICA [Suspect]
     Indication: NERVE DAMAGE
     Dosage: 75 mg, daily
  2. LYRICA [Suspect]
     Dosage: pregabalin was first increased to 75mg two times a day and then finally to 150mg two times a day
  3. HYDROCODONE [Concomitant]
     Indication: PAIN
     Dosage: 500 mg, as needed

REACTIONS (1)
  - Intervertebral disc degeneration [Not Recovered/Not Resolved]
